FAERS Safety Report 11000969 (Version 1)
Quarter: 2015Q2

REPORT INFORMATION
  Report Type: Spontaneous
  Country: US (occurrence: US)
  Receive Date: 20150408
  Receipt Date: 20150408
  Transmission Date: 20150821
  Serious: No
  Sender: FDA-Public Use
  Company Number: US-SA-2014SA147791

PATIENT
  Age: 82 Year
  Sex: Female
  Weight: 102 kg

DRUGS (4)
  1. ACTEMRA [Concomitant]
     Active Substance: TOCILIZUMAB
     Dosage: 1ST A MONTH
     Route: 065
  2. METHOTREXATE [Concomitant]
     Active Substance: METHOTREXATE
     Dosage: BEEN TAKEN FOR YEARS?DAILY DOSE: 1ST A WK
     Route: 065
  3. DIGOXIN. [Concomitant]
     Active Substance: DIGOXIN
     Dosage: BEEN TAKEN FOR YEARS?1ST A DA
     Route: 065
  4. ALLEGRA [Suspect]
     Active Substance: FEXOFENADINE HYDROCHLORIDE
     Indication: MULTIPLE ALLERGIES
     Route: 065
     Dates: end: 20141024

REACTIONS (1)
  - Hypertension [Recovered/Resolved]

NARRATIVE: CASE EVENT DATE: 20141024
